FAERS Safety Report 9381291 (Version 2)
Quarter: 2013Q4

REPORT INFORMATION
  Report Type: Spontaneous
  Country: GB (occurrence: GB)
  Receive Date: 20130703
  Receipt Date: 20131030
  Transmission Date: 20140711
  Serious: Yes (Other)
  Sender: FDA-Public Use
  Company Number: GB-ACCORD-018234

PATIENT
  Age: 62 Year
  Sex: Female
  Weight: 50 kg

DRUGS (10)
  1. EZETIMIBE [Concomitant]
  2. EVENING PRIMROSE OIL [Concomitant]
  3. VITAMINS NOS [Concomitant]
  4. ERGOCALCIFEROL [Concomitant]
  5. SIMVASTATIN [Suspect]
     Indication: PRODUCT USED FOR UNKNOWN INDICATION
     Dosage: AT NIGHT -  ONGOING. STARTED APPROXIMATELY 7 YEARS AGO.
  6. COD LIVER OIL [Concomitant]
  7. AMLODIPINE [Interacting]
     Indication: PRODUCT USED FOR UNKNOWN INDICATION
  8. CLONAZEPAM [Concomitant]
  9. CALCIUM [Concomitant]
  10. REMEDEINE [Concomitant]
     Dosage: 30/500

REACTIONS (3)
  - Peroneal nerve palsy [Not Recovered/Not Resolved]
  - Drug interaction [Unknown]
  - Fall [Not Recovered/Not Resolved]
